FAERS Safety Report 8416330-2 (Version None)
Quarter: 2012Q2

REPORT INFORMATION
  Report Type: 
  Country: None (occurrence: None)
  Receive Date: 20120323
  Receipt Date: 20110720
  Transmission Date: 20120825
  Serious: Yes (Hospitalization)
  Sender: FDA-Public Use
  Company Number: 163-21880-11080943

PATIENT
  Age: 59 Year
  Sex: Male
  Weight: 47.6277 kg

DRUGS (10)
  1. ASPIRIN [Concomitant]
  2. ZOMETA [Concomitant]
  3. ACYCLOVIR [Concomitant]
  4. REVLIMID [Suspect]
     Indication: MULTIPLE MYELOMA
     Dosage: 25 MG, 1 IN 1 D, PO ; 10-5MG, DAILY, PO ; 25 MG, PO
     Route: 048
     Dates: start: 20110310, end: 20110725
  5. REVLIMID [Suspect]
     Indication: MULTIPLE MYELOMA
     Dosage: 25 MG, 1 IN 1 D, PO ; 10-5MG, DAILY, PO ; 25 MG, PO
     Route: 048
     Dates: start: 20090301, end: 20090101
  6. REVLIMID [Suspect]
     Indication: MULTIPLE MYELOMA
     Dosage: 25 MG, 1 IN 1 D, PO ; 10-5MG, DAILY, PO ; 25 MG, PO
     Route: 048
     Dates: start: 20090501, end: 20110101
  7. ATIVAN [Concomitant]
  8. VELCADE [Concomitant]
  9. OXYCODONE HCL [Concomitant]
  10. VITAMIN D [Concomitant]

REACTIONS (2)
  - MULTIPLE MYELOMA [None]
  - PLATELET COUNT DECREASED [None]
